FAERS Safety Report 5039923-1 (Version None)
Quarter: 2006Q2

REPORT INFORMATION
  Report Type: 
  Country: None (occurrence: None)
  Receive Date: 20060601
  Receipt Date: 20060129
  Transmission Date: 20061013
  Serious: No
  Sender: FDA-Public Use
  Company Number: 2005PV004694

PATIENT
  Age: 65 Year
  Sex: Female
  Weight: 106.5953 kg

DRUGS (7)
  1. BYETTA [Suspect]
     Indication: DIABETES MELLITUS NON-INSULIN-DEPENDENT
     Dosage: SEE IMAGE
     Route: 060
     Dates: start: 20051104, end: 20051203
  2. BYETTA [Suspect]
     Indication: DIABETES MELLITUS NON-INSULIN-DEPENDENT
     Dosage: SEE IMAGE
     Route: 060
     Dates: start: 20051204
  3. BYETTA [Suspect]
  4. METFORMIN [Concomitant]
  5. GLUCOTROL XL [Concomitant]
  6. AVANDIA [Concomitant]
  7. ASPIRIN [Concomitant]

REACTIONS (7)
  - DECREASED APPETITE [None]
  - HEADACHE [None]
  - INJECTION SITE BRUISING [None]
  - INJECTION SITE ERYTHEMA [None]
  - INJECTION SITE PAIN [None]
  - NAUSEA [None]
  - WEIGHT DECREASED [None]
